FAERS Safety Report 17484642 (Version 1)
Quarter: 2020Q1

REPORT INFORMATION
  Report Type: Spontaneous
  Country: US (occurrence: US)
  Receive Date: 20200302
  Receipt Date: 20200302
  Transmission Date: 20200409
  Serious: No
  Sender: FDA-Public Use
  Company Number: US-009507513-2002USA002693

PATIENT
  Age: 75 Year
  Sex: Male

DRUGS (2)
  1. NOXAFIL [Suspect]
     Active Substance: POSACONAZOLE
     Indication: SINUSITIS FUNGAL
  2. NOXAFIL [Suspect]
     Active Substance: POSACONAZOLE
     Indication: ORBITAL APEX SYNDROME
     Dosage: UNK
     Route: 048

REACTIONS (1)
  - Off label use [Unknown]
